FAERS Safety Report 20037472 (Version 3)
Quarter: 2021Q4

REPORT INFORMATION
  Report Type: Report from Study
  Country: US (occurrence: US)
  Receive Date: 20211105
  Receipt Date: 20211126
  Transmission Date: 20220303
  Serious: No
  Sender: FDA-Public Use
  Company Number: US-NOVARTISTESTPH-NVSC2021US251746

PATIENT
  Age: 63 Year
  Sex: Female

DRUGS (1)
  1. XIIDRA [Suspect]
     Active Substance: LIFITEGRAST
     Indication: Product used for unknown indication
     Dosage: 1 DRP, BID
     Route: 047
     Dates: start: 20210808

REACTIONS (3)
  - Ocular hyperaemia [Unknown]
  - Erythema of eyelid [Recovered/Resolved with Sequelae]
  - Eye irritation [Unknown]

NARRATIVE: CASE EVENT DATE: 20211029
